FAERS Safety Report 4599223-0 (Version None)
Quarter: 2005Q1

REPORT INFORMATION
  Report Type: 
  Country: None (occurrence: None)
  Receive Date: 20050127
  Receipt Date: 20041027
  Transmission Date: 20050727
  Serious: No
  Sender: FDA-Public Use
  Company Number: USA041082497

PATIENT
  Age: 58 Year
  Sex: Female
  Weight: 63 kg

DRUGS (6)
  1. STRATTERA [Suspect]
  2. LEOTHYROXINE [Concomitant]
  3. ACCOLATE [Concomitant]
  4. PRILOSEC [Concomitant]
  5. MUCINEX (GUAIFENESIN L.A.) [Concomitant]
  6. ALBUTEROL [Concomitant]

REACTIONS (3)
  - FATIGUE [None]
  - PAIN [None]
  - PERSONALITY DISORDER [None]
